FAERS Safety Report 24338480 (Version 1)
Quarter: 2024Q3

REPORT INFORMATION
  Report Type: Spontaneous
  Country: US (occurrence: None)
  Receive Date: 20240918
  Receipt Date: 20240918
  Transmission Date: 20241017
  Serious: Yes (Hospitalization)
  Sender: Public
  Company Number: None

PATIENT
  Age: 50 Year
  Sex: Male

DRUGS (1)
  1. ADAKVEO [Suspect]
     Active Substance: CRIZANLIZUMAB-TMCA
     Indication: Sickle cell disease
     Dosage: FREQUENCY : MONTHLY;?
     Route: 042
     Dates: start: 202308

REACTIONS (2)
  - Sickle cell anaemia with crisis [None]
  - Pneumonia [None]

NARRATIVE: CASE EVENT DATE: 20240902
